FAERS Safety Report 18027789 (Version 1)
Quarter: 2020Q3

REPORT INFORMATION
  Report Type: Spontaneous
  Country: US (occurrence: US)
  Receive Date: 20200716
  Receipt Date: 20200716
  Transmission Date: 20201103
  Serious: Yes (Hospitalization, Other)
  Sender: FDA-Public Use
  Company Number: US-UCBSA-2020027510

PATIENT
  Age: 58 Year
  Sex: Female

DRUGS (3)
  1. BRIVIACT [Suspect]
     Active Substance: BRIVARACETAM
     Indication: SEIZURE
     Dosage: UNK
     Dates: start: 201911
  2. VIMPAT [Suspect]
     Active Substance: LACOSAMIDE
     Dosage: DOSE REDUCED
     Dates: start: 201906, end: 20191117
  3. VIMPAT [Suspect]
     Active Substance: LACOSAMIDE
     Indication: SEIZURE
     Dosage: UNK
     Dates: start: 201803, end: 201906

REACTIONS (13)
  - Cough [Not Recovered/Not Resolved]
  - Dysphagia [Not Recovered/Not Resolved]
  - Aura [Not Recovered/Not Resolved]
  - Memory impairment [Not Recovered/Not Resolved]
  - Generalised tonic-clonic seizure [Not Recovered/Not Resolved]
  - Speech disorder [Not Recovered/Not Resolved]
  - Drug eruption [Not Recovered/Not Resolved]
  - Dysarthria [Not Recovered/Not Resolved]
  - Dizziness [Not Recovered/Not Resolved]
  - Fatigue [Not Recovered/Not Resolved]
  - Seizure [Not Recovered/Not Resolved]
  - Candida infection [Not Recovered/Not Resolved]
  - Pneumonia [Not Recovered/Not Resolved]

NARRATIVE: CASE EVENT DATE: 201906
